FAERS Safety Report 5837634-3 (Version None)
Quarter: 2008Q3

REPORT INFORMATION
  Report Type: 
  Country: None (occurrence: None)
  Receive Date: 20080807
  Receipt Date: 20080731
  Transmission Date: 20090109
  Serious: Yes (Hospitalization, Other)
  Sender: FDA-Public Use
  Company Number: PHHY2008BR16503

PATIENT
  Age: 71 Year
  Sex: Male

DRUGS (4)
  1. DESERILA [Suspect]
     Indication: MIGRAINE
     Dosage: UNK
     Dates: start: 19930101, end: 19960101
  2. ISONIAZID [Concomitant]
  3. RIFAMPICIN [Concomitant]
  4. PYRAZINAMIDE [Concomitant]

REACTIONS (4)
  - AUTOIMMUNE DISORDER [None]
  - BLADDER NEOPLASM [None]
  - MIGRAINE [None]
  - PYREXIA [None]
